FAERS Safety Report 6386394-9 (Version None)
Quarter: 2009Q3

REPORT INFORMATION
  Report Type: 
  Country: None (occurrence: None)
  Receive Date: 20090930
  Receipt Date: 20090930
  Transmission Date: 20100115
  Serious: Yes (Life-Threatening)
  Sender: FDA-Public Use
  Company Number: None

PATIENT
  Sex: Female
  Weight: 84.369 kg

DRUGS (2)
  1. AVASTIN [Suspect]
     Indication: NON-SMALL CELL LUNG CANCER
     Dosage: 15 MG/KG Q 21 DAYS IV
     Route: 042
     Dates: start: 20090807, end: 20090922
  2. CISPLATIN [Suspect]
     Dosage: 75 MG/ML Q 21 DAYS IV
     Route: 042
     Dates: start: 20090807, end: 20090922

REACTIONS (2)
  - DEEP VEIN THROMBOSIS [None]
  - PULMONARY EMBOLISM [None]
